FAERS Safety Report 13096690 (Version 1)
Quarter: 2017Q1

REPORT INFORMATION
  Report Type: Spontaneous
  Country: US (occurrence: US)
  Receive Date: 20170109
  Receipt Date: 20170109
  Transmission Date: 20170428
  Serious: Yes (Death, Hospitalization)
  Sender: FDA-Public Use
  Company Number: US-BAYER-2017-000890

PATIENT
  Age: 45 Year
  Sex: Female

DRUGS (9)
  1. ACETAMINOPHEN. [Suspect]
     Active Substance: ACETAMINOPHEN
  2. POTASSIUM CHLORIDE. [Suspect]
     Active Substance: POTASSIUM CHLORIDE
  3. NAPROXEN SODIUM ({= 220 MG) [Suspect]
     Active Substance: NAPROXEN SODIUM
     Dosage: UNK
  4. BACLOFEN. [Suspect]
     Active Substance: BACLOFEN
  5. CODEINE [Suspect]
     Active Substance: CODEINE
  6. DIAZEPAM. [Suspect]
     Active Substance: DIAZEPAM
  7. GABAPENTIN. [Suspect]
     Active Substance: GABAPENTIN
  8. AMITRIPTYLINE [Suspect]
     Active Substance: AMITRIPTYLINE
  9. HYDROCODONE [Suspect]
     Active Substance: HYDROCODONE

REACTIONS (1)
  - Toxicity to various agents [Fatal]
